FAERS Safety Report 18917946 (Version 4)
Quarter: 2025Q1

REPORT INFORMATION
  Report Type: Report from Study
  Country: DE (occurrence: DE)
  Receive Date: 20210219
  Receipt Date: 20250224
  Transmission Date: 20250408
  Serious: Yes (Death, Other)
  Sender: NOVARTIS
  Company Number: NVSC2021DE034895

PATIENT
  Sex: Female
  Weight: 72 kg

DRUGS (2)
  1. MAYZENT [Suspect]
     Active Substance: SIPONIMOD
     Indication: Secondary progressive multiple sclerosis
     Dosage: 2 MG, QD
     Route: 048
     Dates: start: 20210126, end: 20210208
  2. METOPROLOL;MORPHINE [Concomitant]
     Indication: Hypertension
     Dosage: 47.5 MG, QD
     Route: 065

REACTIONS (2)
  - Death [Fatal]
  - Hypertensive crisis [Not Recovered/Not Resolved]

NARRATIVE: CASE EVENT DATE: 20210208
